FAERS Safety Report 17030457 (Version 4)
Quarter: 2021Q2

REPORT INFORMATION
  Report Type: Spontaneous
  Country: US (occurrence: US)
  Receive Date: 20191114
  Receipt Date: 20210413
  Transmission Date: 20210716
  Serious: No
  Sender: FDA-Public Use
  Company Number: US-ALLERGAN-1925560US

PATIENT
  Age: 66 Year
  Sex: Female

DRUGS (6)
  1. RESTASIS [Suspect]
     Active Substance: CYCLOSPORINE
     Indication: POSTOPERATIVE CARE
     Dosage: 1 GTT, BID
     Route: 047
     Dates: start: 201906
  2. LISINOPRIL. [Concomitant]
     Active Substance: LISINOPRIL
     Indication: HYPERTENSION
     Dosage: UNK, QD
     Route: 048
  3. COMBIGAN [Suspect]
     Active Substance: BRIMONIDINE TARTRATE\TIMOLOL MALEATE
     Indication: POSTOPERATIVE CARE
     Dosage: UNK, BID
     Route: 047
     Dates: start: 201906
  4. LUMIGAN [Suspect]
     Active Substance: BIMATOPROST
     Indication: POSTOPERATIVE CARE
     Dosage: UNK, QHS
     Route: 047
     Dates: start: 201906
  5. DUREZOL [Suspect]
     Active Substance: DIFLUPREDNATE
     Indication: POSTOPERATIVE CARE
     Dosage: UNK, QD
     Route: 047
     Dates: start: 201906
  6. AZOPT [Suspect]
     Active Substance: BRINZOLAMIDE
     Indication: POSTOPERATIVE CARE
     Dosage: UNK, QD
     Route: 047
     Dates: start: 201906

REACTIONS (2)
  - Off label use [Unknown]
  - Therapeutic response unexpected [Not Recovered/Not Resolved]

NARRATIVE: CASE EVENT DATE: 2019
